FAERS Safety Report 8801629 (Version 1)
Quarter: 2012Q4

REPORT INFORMATION
  Report Type: Report from Study
  Country: AT (occurrence: AT)
  Receive Date: 20120921
  Receipt Date: 20120921
  Transmission Date: 20130627
  Serious: Yes (Other)
  Sender: FDA-Public Use
  Company Number: AT-BAYER-2012-095888

PATIENT
  Sex: Female

DRUGS (1)
  1. MIRENA [Suspect]
     Dosage: 20 ?g/d, UNK
     Route: 015

REACTIONS (4)
  - Angina pectoris [None]
  - Extrasystoles [None]
  - Palpitations [None]
  - Mood altered [None]
